FAERS Safety Report 19084919 (Version 2)
Quarter: 2021Q2

REPORT INFORMATION
  Report Type: Spontaneous
  Country: US (occurrence: US)
  Receive Date: 20210401
  Receipt Date: 20210423
  Transmission Date: 20210717
  Serious: Yes (Other)
  Sender: FDA-Public Use
  Company Number: US-PFIZER INC-2021330947

PATIENT
  Age: 25 Year
  Weight: 65 kg

DRUGS (7)
  1. MOXIFLOXACINE [Concomitant]
     Active Substance: MOXIFLOXACIN
     Indication: PROPHYLAXIS
     Dosage: UNK
  2. VENETOCLAX. [Concomitant]
     Active Substance: VENETOCLAX
     Dosage: 200 MG, UNK
     Route: 048
     Dates: start: 20210312
  3. VORICONAZOLE. [Concomitant]
     Active Substance: VORICONAZOLE
     Indication: PROPHYLAXIS
     Dosage: UNK
  4. CYTARABINE. [Suspect]
     Active Substance: CYTARABINE
     Dosage: UNK (7?3 PROTOCOL)
  5. AZACITIDINE. [Concomitant]
     Active Substance: AZACITIDINE
     Dosage: UNK
  6. MITOXANTRONE HCL [Suspect]
     Active Substance: MITOXANTRONE HYDROCHLORIDE
     Indication: ACUTE MYELOID LEUKAEMIA RECURRENT
     Dosage: UNK
  7. EPIRUBICIN HCL [Suspect]
     Active Substance: EPIRUBICIN HYDROCHLORIDE
     Dosage: UNK (7?3 PROTOCOL)

REACTIONS (3)
  - Retinal detachment [Unknown]
  - Pneumonia [Unknown]
  - Cardiotoxicity [Unknown]
